FAERS Safety Report 14947676 (Version 2)
Quarter: 2018Q2

REPORT INFORMATION
  Report Type: Spontaneous
  Country: JP (occurrence: JP)
  Receive Date: 20180529
  Receipt Date: 20180622
  Transmission Date: 20180711
  Serious: Yes (Hospitalization)
  Sender: FDA-Public Use
  Company Number: JP-PFIZER INC-2018081582

PATIENT

DRUGS (1)
  1. SUTENT [Suspect]
     Active Substance: SUNITINIB MALATE
     Indication: RENAL CELL CARCINOMA
     Dosage: 50 MG, CYCLIC (DAILY, 2 WEEKS ON AND 1 WEEK OFF)
     Route: 048
     Dates: end: 20180516

REACTIONS (7)
  - Pyrexia [Recovered/Resolved]
  - Aspartate aminotransferase increased [Unknown]
  - Alanine aminotransferase increased [Unknown]
  - Enterocolitis [Recovered/Resolved]
  - Blood bilirubin increased [Unknown]
  - Proteinuria [Unknown]
  - Platelet count decreased [Recovered/Resolved]
